FAERS Safety Report 19551919 (Version 2)
Quarter: 2021Q3

REPORT INFORMATION
  Report Type: Spontaneous
  Country: JP (occurrence: JP)
  Receive Date: 20210714
  Receipt Date: 20210812
  Transmission Date: 20211014
  Serious: Yes (Death, Hospitalization, Other)
  Sender: FDA-Public Use
  Company Number: JP-ELI_LILLY_AND_COMPANY-JP202107004485

PATIENT
  Age: 77 Year

DRUGS (9)
  1. TAKECAB [Concomitant]
     Active Substance: VONOPRAZAN FUMARATE
     Route: 048
  2. DOCETAXEL. [Concomitant]
     Active Substance: DOCETAXEL
     Indication: LUNG ADENOCARCINOMA STAGE IV
     Dosage: UNK
     Dates: start: 20201124
  3. PURSENNID [SENNOSIDE A+B CALCIUM] [Concomitant]
     Active Substance: SENNOSIDES A AND B
     Route: 048
  4. ADALAT CC [Concomitant]
     Active Substance: NIFEDIPINE
     Route: 048
  5. CYRAMZA [Suspect]
     Active Substance: RAMUCIRUMAB
     Indication: LUNG ADENOCARCINOMA STAGE IV
     Dosage: 590 MG
     Route: 041
     Dates: start: 20201124, end: 20210126
  6. DENOTAS [Concomitant]
     Active Substance: CALCIUM CARBONATE\CHOLECALCIFEROL\MAGNESIUM CARBONATE
     Route: 048
  7. MAGMITT [Concomitant]
     Active Substance: MAGNESIUM OXIDE
     Route: 048
  8. MICARDIS [Concomitant]
     Active Substance: TELMISARTAN
     Route: 048
  9. ISOCORONAL R [Concomitant]
     Active Substance: ISOSORBIDE DINITRATE
     Route: 048

REACTIONS (3)
  - Diverticulum intestinal haemorrhagic [Recovering/Resolving]
  - Malignant neoplasm progression [Fatal]
  - Hypothyroidism [Not Recovered/Not Resolved]

NARRATIVE: CASE EVENT DATE: 20210328
